FAERS Safety Report 4972135-6 (Version None)
Quarter: 2006Q2

REPORT INFORMATION
  Report Type: 
  Country: None (occurrence: None)
  Receive Date: 20060413
  Receipt Date: 20051121
  Transmission Date: 20061013
  Serious: Yes (Hospitalization)
  Sender: FDA-Public Use
  Company Number: US-ROCHE-425882

PATIENT
  Age: 54 Year
  Sex: Male

DRUGS (4)
  1. PEGASYS [Suspect]
     Indication: HEPATITIS C
     Route: 058
     Dates: start: 20051007, end: 20051201
  2. COPEGUS [Suspect]
     Indication: HEPATITIS C
     Route: 048
     Dates: start: 20051007, end: 20051201
  3. FORTAMET [Concomitant]
     Dosage: DAILY.
     Route: 048
     Dates: end: 20051120
  4. ANTIHYPERTENSIVE DRUG NOS [Concomitant]
     Indication: HYPERTENSION
     Dosage: DAILY.
     Route: 048
     Dates: end: 20051120

REACTIONS (14)
  - ABDOMINAL DISTENSION [None]
  - ABDOMINAL PAIN [None]
  - ANOREXIA [None]
  - COUGH [None]
  - DIARRHOEA [None]
  - HAEMORRHOIDS [None]
  - LUNG CANCER METASTATIC [None]
  - LUNG NEOPLASM [None]
  - PERITONEAL EFFUSION [None]
  - PLATELET COUNT DECREASED [None]
  - PSORIASIS [None]
  - SPLENOMEGALY [None]
  - WEIGHT DECREASED [None]
  - WHITE BLOOD CELL COUNT DECREASED [None]
